FAERS Safety Report 14249674 (Version 1)
Quarter: 2017Q4

REPORT INFORMATION
  Report Type: Spontaneous
  Country: US (occurrence: None)
  Receive Date: 20171204
  Receipt Date: 20171204
  Transmission Date: 20180321
  Serious: No
  Sender: FDA-Public Use
  Company Number: None

PATIENT
  Age: 70 Year
  Sex: Female

DRUGS (14)
  1. GLUCOS/CHOND [Concomitant]
  2. IMATINIB MESYLATE. [Suspect]
     Active Substance: IMATINIB MESYLATE
     Indication: CHRONIC MYELOID LEUKAEMIA
     Route: 048
     Dates: start: 20160822
  3. PREVACID [Concomitant]
     Active Substance: LANSOPRAZOLE
  4. IRON [Concomitant]
     Active Substance: IRON
  5. CALCIUM [Concomitant]
     Active Substance: CALCIUM
  6. FIBER [Concomitant]
     Active Substance: PSYLLIUM HUSK
  7. GLEEVEC [Suspect]
     Active Substance: IMATINIB MESYLATE
     Indication: CHRONIC MYELOID LEUKAEMIA
     Route: 048
     Dates: start: 20100120, end: 20160822
  8. MULTIVITAMIN [Concomitant]
     Active Substance: VITAMINS
  9. TRIAMT/HCTZ [Concomitant]
     Active Substance: HYDROCHLOROTHIAZIDE\TRIAMTERENE
  10. VITAMIN B12 [Concomitant]
     Active Substance: CYANOCOBALAMIN
  11. PANTOPRAZOLE [Concomitant]
     Active Substance: PANTOPRAZOLE
  12. PROBIOTIC [Concomitant]
     Active Substance: PROBIOTICS NOS
  13. VITAMIN D3 [Concomitant]
     Active Substance: CHOLECALCIFEROL
  14. LEXAPRO [Concomitant]
     Active Substance: ESCITALOPRAM OXALATE

REACTIONS (3)
  - Diverticulitis [None]
  - Surgery [None]
  - Product substitution issue [None]
